FAERS Safety Report 21736382 (Version 1)
Quarter: 2022Q4

REPORT INFORMATION
  Report Type: Spontaneous
  Country: CN (occurrence: CN)
  Receive Date: 20221215
  Receipt Date: 20221215
  Transmission Date: 20230113
  Serious: Yes (Other)
  Sender: FDA-Public Use
  Company Number: CN-009507513-2212CHN003991

PATIENT
  Age: 88 Year
  Sex: Male

DRUGS (4)
  1. CILASTATIN SODIUM\IMIPENEM [Suspect]
     Active Substance: CILASTATIN SODIUM\IMIPENEM
     Indication: Pneumonia
     Dosage: 0.5 GRAM, Q8H (ALSO REPORTED AS 8 TIMES/DAY)
     Route: 041
     Dates: start: 20221122, end: 20221202
  2. MOXIFLOXACIN HYDROCHLORIDE [Concomitant]
     Active Substance: MOXIFLOXACIN HYDROCHLORIDE
     Indication: Pneumonia
     Dosage: 0.4 GRAM ONCE/DAY
     Route: 041
     Dates: start: 20221122, end: 20221205
  3. MEROPENEM [Concomitant]
     Active Substance: MEROPENEM
     Dosage: 0.5 (UNIT NOT PROVIDED), Q8H
     Dates: start: 202211, end: 202211
  4. MEROPENEM [Concomitant]
     Active Substance: MEROPENEM
     Dosage: 1 (UNITS NOT PROVIDED) Q6H
     Dates: start: 202211, end: 202211

REACTIONS (4)
  - Cerebral ischaemia [Unknown]
  - Neurodegenerative disorder [Unknown]
  - Tremor [Recovered/Resolved]
  - Product use issue [Unknown]

NARRATIVE: CASE EVENT DATE: 20221122
